FAERS Safety Report 6739893-1 (Version None)
Quarter: 2010Q2

REPORT INFORMATION
  Report Type: 
  Country: None (occurrence: None)
  Receive Date: 20100525
  Receipt Date: 20100513
  Transmission Date: 20101027
  Serious: Yes (Hospitalization)
  Sender: FDA-Public Use
  Company Number: US-PFIZER INC-2010052643

PATIENT
  Sex: Female
  Weight: 97.506 kg

DRUGS (10)
  1. SOLU-MEDROL [Suspect]
     Indication: LATEX ALLERGY
     Dosage: 125 MG, UNK
     Route: 042
     Dates: start: 20100120, end: 20100421
  2. EPINEPHRINE [Suspect]
     Indication: LATEX ALLERGY
     Dosage: 0.3 MG, UNK
     Route: 058
     Dates: start: 20100120, end: 20100421
  3. BENADRYL [Suspect]
     Indication: LATEX ALLERGY
     Dosage: 50 MG, UNK
     Route: 042
     Dates: start: 20100101, end: 20100421
  4. TAGAMET [Suspect]
     Indication: LATEX ALLERGY
     Dosage: 300 MG, UNK
     Route: 042
     Dates: start: 20100120, end: 20100421
  5. ZANTAC [Suspect]
     Indication: HYPERSENSITIVITY
     Dosage: 50 MG, UNK
     Route: 042
     Dates: start: 20100420, end: 20100421
  6. DOXYCYCLINE [Suspect]
     Indication: PNEUMONIA
     Dosage: 100 MG, 2X/DAY
     Dates: start: 20100115, end: 20100124
  7. TOPAMAX [Concomitant]
     Indication: MIGRAINE
     Dosage: 100 MG, AT BEDTIME
  8. XOPENEX [Concomitant]
     Dosage: UNK
  9. AZMACORT [Concomitant]
     Dosage: UNK
  10. ALBUTEROL [Concomitant]
     Dosage: UNK

REACTIONS (11)
  - ANAPHYLACTIC REACTION [None]
  - DERMATITIS ALLERGIC [None]
  - DYSPNOEA [None]
  - FLUSHING [None]
  - HYPOKALAEMIA [None]
  - OROPHARYNGEAL DISCOMFORT [None]
  - PHARYNGEAL MASS [None]
  - PRURITUS [None]
  - RASH [None]
  - RESPIRATORY DISORDER [None]
  - URTICARIA [None]
